FAERS Safety Report 5337678-4 (Version None)
Quarter: 2007Q2

REPORT INFORMATION
  Report Type: 
  Country: None (occurrence: None)
  Receive Date: 20070315
  Receipt Date: 20060314
  Transmission Date: 20071010
  Serious: Yes (Hospitalization)
  Sender: FDA-Public Use
  Company Number: PHEH2006US03223

PATIENT
  Age: 68 Year
  Sex: Female

DRUGS (7)
  1. TRILEPTAL [Suspect]
     Indication: COMPLEX PARTIAL SEIZURES
     Dosage: 1200 MG, QD, ORAL
     Route: 048
     Dates: start: 20050101, end: 20060101
  2. ZONEGRAN [Suspect]
     Dates: start: 20060201, end: 20060201
  3. ATENOLOL [Concomitant]
  4. PROTONIX [Concomitant]
  5. BREVA (IPRATROPIUM BROMIDE, SALBUTAMOL) [Concomitant]
  6. RIBAVIRIN [Concomitant]
  7. NIFEDICAL (NIFEDIPINE) [Concomitant]

REACTIONS (4)
  - CONVULSION [None]
  - ERYTHEMA [None]
  - PRURITUS [None]
  - RASH GENERALISED [None]
